FAERS Safety Report 9287105 (Version 1)
Quarter: 2013Q2

REPORT INFORMATION
  Report Type: Spontaneous
  Country: US (occurrence: US)
  Receive Date: 20130513
  Receipt Date: 20130513
  Transmission Date: 20140414
  Serious: No
  Sender: FDA-Public Use
  Company Number: US-PFIZER INC-2013146775

PATIENT
  Age: 48 Year
  Sex: Female
  Weight: 77.1 kg

DRUGS (3)
  1. ZOLOFT [Suspect]
     Indication: ANXIETY
     Dosage: 100 MG, 1X/DAY
     Route: 048
     Dates: start: 1996
  2. ZOLOFT [Suspect]
     Dosage: 50 MG, 1X/DAY
     Route: 048
  3. VALTREX [Concomitant]
     Dosage: UNK, AS NEEDED

REACTIONS (6)
  - Hypothyroidism [Unknown]
  - Menopausal symptoms [Unknown]
  - Hot flush [Unknown]
  - Fatigue [Unknown]
  - Insomnia [Unknown]
  - Sluggishness [Unknown]
